FAERS Safety Report 7338331-8 (Version None)
Quarter: 2011Q1

REPORT INFORMATION
  Report Type: 
  Country: None (occurrence: None)
  Receive Date: 20110224
  Receipt Date: 20110210
  Transmission Date: 20110831
  Serious: Yes (Hospitalization)
  Sender: FDA-Public Use
  Company Number: JP-2011-0345

PATIENT
  Sex: Female

DRUGS (1)
  1. NAVELBINE [Suspect]

REACTIONS (1)
  - PARKINSONISM [None]
